FAERS Safety Report 14157028 (Version 1)
Quarter: 2017Q4

REPORT INFORMATION
  Report Type: Spontaneous
  Country: US (occurrence: US)
  Receive Date: 20171103
  Receipt Date: 20171103
  Transmission Date: 20180321
  Serious: Yes (Disabling)
  Sender: FDA-Public Use
  Company Number: None

PATIENT
  Age: 46 Year
  Sex: Female
  Weight: 58.95 kg

DRUGS (18)
  1. PAZEO EYE DROPS [Concomitant]
  2. FIORICET [Concomitant]
     Active Substance: ACETAMINOPHEN\BUTALBITAL\CAFFEINE
  3. IBUPROFEN/TYELNOL [Concomitant]
  4. LEVOTHYROXINE. [Concomitant]
     Active Substance: LEVOTHYROXINE
  5. LEFLUNOMIDE. [Concomitant]
     Active Substance: LEFLUNOMIDE
  6. TECFIDERA [Concomitant]
     Active Substance: DIMETHYL FUMARATE
  7. NEURONTIN [Concomitant]
     Active Substance: GABAPENTIN
  8. B- 12 SHOTS [Concomitant]
  9. KLONOPIN [Concomitant]
     Active Substance: CLONAZEPAM
  10. ZOFRAN [Concomitant]
     Active Substance: ONDANSETRON HYDROCHLORIDE
  11. ADVAIR HFA [Concomitant]
     Active Substance: FLUTICASONE PROPIONATE\SALMETEROL XINAFOATE
  12. ALBUTEROL. [Concomitant]
     Active Substance: ALBUTEROL
  13. LINZESS [Suspect]
     Active Substance: LINACLOTIDE
     Indication: MULTIPLE SCLEROSIS
     Dosage: ?          QUANTITY:1 CAPSULE(S);?
     Route: 048
  14. BACLOFEN. [Concomitant]
     Active Substance: BACLOFEN
  15. FISH OIL [Concomitant]
     Active Substance: FISH OIL
  16. UROCIT-K [Concomitant]
     Active Substance: POTASSIUM CITRATE
  17. VITAMIN D [Concomitant]
     Active Substance: CHOLECALCIFEROL
  18. ASPIRIN. [Concomitant]
     Active Substance: ASPIRIN

REACTIONS (5)
  - Pain [None]
  - Neurogenic bowel [None]
  - Abdominal distension [None]
  - Condition aggravated [None]
  - Product substitution issue [None]

NARRATIVE: CASE EVENT DATE: 20171030
